FAERS Safety Report 8276367-3 (Version None)
Quarter: 2012Q2

REPORT INFORMATION
  Report Type: 
  Country: None (occurrence: None)
  Receive Date: 20120409
  Receipt Date: 20120404
  Transmission Date: 20120825
  Serious: Yes (Other)
  Sender: FDA-Public Use
  Company Number: 2011SP015239

PATIENT
  Sex: Female

DRUGS (3)
  1. IMPLANON [Suspect]
     Indication: PRODUCT USED FOR UNKNOWN INDICATION
     Dosage: 1 DF
     Dates: start: 20110217
  2. IMPLANON [Suspect]
  3. SELECTIVE SEROTONIN REUPTAKE INHIBITORS [Concomitant]

REACTIONS (5)
  - PREGNANCY WITH IMPLANT CONTRACEPTIVE [None]
  - HAEMORRHAGE IN PREGNANCY [None]
  - CAESAREAN SECTION [None]
  - MATERNAL EXPOSURE DURING DELIVERY [None]
  - DRUG INEFFECTIVE [None]
